FAERS Safety Report 19574407 (Version 1)
Quarter: 2021Q3

REPORT INFORMATION
  Report Type: Report from Study
  Country: GB (occurrence: GB)
  Receive Date: 20210719
  Receipt Date: 20210719
  Transmission Date: 20211014
  Serious: Yes (Hospitalization)
  Sender: FDA-Public Use
  Company Number: GB-CELLTRION INC.-2021GB009407

PATIENT

DRUGS (27)
  1. CHOLECALCIFEROL [Concomitant]
     Active Substance: CHOLECALCIFEROL
     Dosage: 800 MG, QD (DOSE FORM: 245)
     Route: 048
  2. SIMVADOR [Concomitant]
     Active Substance: SIMVASTATIN
     Dosage: 40 MG, QD (DOSE FORM: 245)
     Route: 048
  3. CAPECITABINE. [Suspect]
     Active Substance: CAPECITABINE
     Dosage: 1450 MG, QD (CUMULATIVE DOSE: 50750.0 MG)
     Route: 048
     Dates: start: 20160527, end: 20160916
  4. TRIMETHOPRIM. [Concomitant]
     Active Substance: TRIMETHOPRIM
     Dosage: 400 MG, QD (DOSE FORM: 245)
     Route: 048
     Dates: start: 20181116, end: 20181123
  5. TRASTUZUMAB (UNKNOWN) [Suspect]
     Active Substance: TRASTUZUMAB
     Indication: BREAST CANCER METASTATIC
     Dosage: 600 MG, EVERY 3 WEEKS (DOSE FORM: 231)
     Route: 058
     Dates: start: 20160527, end: 20180914
  6. AMITRIPTYLINE [Concomitant]
     Active Substance: AMITRIPTYLINE
     Indication: HEADACHE
     Dosage: 50 MG, QD (DOSE FORM: 245)
     Route: 048
     Dates: start: 20170922
  7. DEXAMETHASONE. [Concomitant]
     Active Substance: DEXAMETHASONE
     Indication: HEADACHE
     Dosage: 4 MG, QD (DOSE FORM: 245)
     Route: 048
     Dates: start: 20170922, end: 20171006
  8. ALENDRONIC ACID [Concomitant]
     Active Substance: ALENDRONIC ACID
     Dosage: 70 MG, 1/WEEK (DOSE FORM: 245)
     Route: 048
  9. FLUCONAZOLE. [Concomitant]
     Active Substance: FLUCONAZOLE
     Indication: ORAL PAIN
     Dosage: 50 MG, QD (DOSE FORM: 245)
     Route: 048
     Dates: start: 20180831, end: 20180907
  10. GABAPENTIN. [Concomitant]
     Active Substance: GABAPENTIN
     Dosage: 100 MG, PRN (DOSE FORM: 245)
     Route: 048
     Dates: start: 20161118
  11. NYSTATIN. [Concomitant]
     Active Substance: NYSTATIN
     Indication: ORAL PAIN
     Dosage: 1 DROP, QD
     Route: 048
     Dates: start: 20180831, end: 20180914
  12. ASPIRIN. [Concomitant]
     Active Substance: ASPIRIN
     Dosage: 75 MG, QD (DOSE FORM: 245)
     Route: 048
  13. TAMOXIFEN [Suspect]
     Active Substance: TAMOXIFEN
     Indication: BREAST CANCER METASTATIC
     Dosage: 20 MG, QD
     Route: 048
     Dates: start: 20160316
  14. AVEENO [Concomitant]
     Active Substance: DIMETHICONE\HOMOSALATE\OCTINOXATE\OCTISALATE\TITANIUM DIOXIDE
     Dosage: UNK, PRN (DOSE FORM: 17)
     Route: 061
     Dates: start: 20160701
  15. CLARITHROMYCIN. [Concomitant]
     Active Substance: CLARITHROMYCIN
     Dosage: 1000 MG, QD (DOSE FORM: 245)
     Route: 048
     Dates: start: 20180420
  16. CAPECITABINE. [Suspect]
     Active Substance: CAPECITABINE
     Indication: BREAST CANCER METASTATIC
     Dosage: 1300 MG, EVERY 3 WEEKS
     Route: 048
     Dates: start: 20161007, end: 20161209
  17. AMLODIPINE [Concomitant]
     Active Substance: AMLODIPINE BESYLATE
     Dosage: 5 MG, QD (DOSE FORM: 245)
     Route: 048
     Dates: start: 20160725
  18. SANDO?K [Concomitant]
     Indication: BLOOD POTASSIUM DECREASED
     Dosage: 2 MG, QD (DOSE FORM: 245)
     Route: 048
     Dates: start: 20160721, end: 20160724
  19. TRIMETHOPRIM. [Concomitant]
     Active Substance: TRIMETHOPRIM
     Dosage: 400 MG, QD (DOSE FORM: 245)
     Route: 048
     Dates: start: 20180205
  20. CAPECITABINE. [Suspect]
     Active Substance: CAPECITABINE
     Dosage: 1300 MG, EVERY 3 WEEKS
     Route: 048
     Dates: start: 20161007, end: 20161209
  21. CAPECITABINE. [Suspect]
     Active Substance: CAPECITABINE
     Dosage: 1450 MG, QD (CUMULATIVE DOSE: 50750.0 MG)
     Route: 048
     Dates: start: 20160527, end: 20160916
  22. CALCIUM CARBONATE. [Concomitant]
     Active Substance: CALCIUM CARBONATE
     Dosage: 800 MG, QD (DOSE FORM: 245)
     Route: 048
  23. CITALOPRAM [Concomitant]
     Active Substance: CITALOPRAM HYDROBROMIDE
     Indication: DEPRESSION
     Dosage: 10 MG, QD (DOSE FORM: 245)
     Route: 048
  24. LANSOPRAZOLE. [Concomitant]
     Active Substance: LANSOPRAZOLE
     Dosage: 30 MG, QD (DOSE FORM: 245)
     Route: 048
     Dates: start: 20170922
  25. METOCLOPRAMIDE. [Concomitant]
     Active Substance: METOCLOPRAMIDE
     Indication: NAUSEA
     Dosage: 10 MG, PRN (DOSE FORM: 245)
     Route: 048
     Dates: start: 20180831
  26. RAMIPRIL. [Concomitant]
     Active Substance: RAMIPRIL
     Dosage: 5 MG, QD (DOSE FORM: 245)
     Route: 048
     Dates: end: 20160721
  27. TRIMETHOPRIM. [Concomitant]
     Active Substance: TRIMETHOPRIM
     Dosage: 400 MG, QD (DOSE FORM: 245)
     Route: 048
     Dates: start: 20181116, end: 20181123

REACTIONS (11)
  - Diarrhoea [Recovered/Resolved]
  - Abdominal pain [Recovered/Resolved]
  - Rash [Not Recovered/Not Resolved]
  - Neuropathy peripheral [Recovered/Resolved]
  - Vomiting [Recovered/Resolved]
  - Arthralgia [Recovered/Resolved]
  - Swollen tongue [Recovered/Resolved]
  - Lethargy [Recovered/Resolved]
  - Insomnia [Recovered/Resolved]
  - Musculoskeletal pain [Not Recovered/Not Resolved]
  - Incorrect route of product administration [Unknown]

NARRATIVE: CASE EVENT DATE: 20160701
